FAERS Safety Report 6912240-8 (Version None)
Quarter: 2010Q3

REPORT INFORMATION
  Report Type: 
  Country: None (occurrence: None)
  Receive Date: 20100806
  Receipt Date: 20080310
  Transmission Date: 20110219
  Serious: Yes (Other)
  Sender: FDA-Public Use
  Company Number: US-PFIZER INC-2008012180

PATIENT
  Sex: Male
  Weight: 95.3 kg

DRUGS (8)
  1. DETROL LA [Suspect]
     Indication: DYSURIA
     Route: 048
     Dates: start: 20080131
  2. DETROL LA [Suspect]
     Indication: POLLAKIURIA
  3. DETROL LA [Suspect]
     Indication: MICTURITION URGENCY
  4. ATENOLOL [Concomitant]
  5. VALIUM [Concomitant]
  6. TAMSULOSIN HCL [Concomitant]
  7. MIRTAZAPINE [Concomitant]
     Indication: SLEEP DISORDER
  8. ACETYLSALICYLIC ACID SRT [Concomitant]

REACTIONS (1)
  - URINARY RETENTION [None]
